FAERS Safety Report 10447312 (Version 2)
Quarter: 2014Q4

REPORT INFORMATION
  Report Type: Spontaneous
  Country: JP (occurrence: JP)
  Receive Date: 20140911
  Receipt Date: 20141007
  Transmission Date: 20150528
  Serious: Yes (Life-Threatening, Other)
  Sender: FDA-Public Use
  Company Number: JP-MYLANLABS-2014M1004195

PATIENT
  Age: 66 Year
  Sex: Male

DRUGS (2)
  1. PREDNISOLONE. [Suspect]
     Active Substance: PREDNISOLONE
     Dosage: 20MG/DAY (0.4MG/KG) FOR 10 DAYS THEN INCREASED
     Route: 065
  2. PREDNISOLONE. [Suspect]
     Active Substance: PREDNISOLONE
     Dosage: 30MG/DAY
     Route: 065

REACTIONS (6)
  - Gastrointestinal hypomotility [None]
  - Thrombotic microangiopathy [Recovering/Resolving]
  - Atrioventricular block [Recovered/Resolved]
  - Atrioventricular block complete [None]
  - Scleroderma renal crisis [Not Recovered/Not Resolved]
  - Pneumonia aspiration [None]
